FAERS Safety Report 22070345 (Version 2)
Quarter: 2023Q2

REPORT INFORMATION
  Report Type: Spontaneous
  Country: US (occurrence: US)
  Receive Date: 20230307
  Receipt Date: 20230420
  Transmission Date: 20230722
  Serious: No
  Sender: FDA-Public Use
  Company Number: US-PFIZER INC-202300091630

PATIENT
  Age: 10 Year
  Sex: Male

DRUGS (1)
  1. GENOTROPIN [Suspect]
     Active Substance: SOMATROPIN
     Indication: Body height
     Dosage: 1.2 DOSE UNITS NOT SPECIFIED INJECTED ONCE A DAY ON THE THIGH AREA AND THE BUTTOCKS

REACTIONS (1)
  - Device leakage [Unknown]
